FAERS Safety Report 8552931-9 (Version None)
Quarter: 2012Q3

REPORT INFORMATION
  Report Type: 
  Country: None (occurrence: None)
  Receive Date: 20120731
  Receipt Date: 20120723
  Transmission Date: 20120928
  Serious: Yes (Other)
  Sender: FDA-Public Use
  Company Number: US-US-EMD SERONO, INC.-7149943

PATIENT
  Sex: Female

DRUGS (3)
  1. VALIUM [Concomitant]
     Indication: PRODUCT USED FOR UNKNOWN INDICATION
  2. REBIF [Suspect]
     Indication: PRODUCT USED FOR UNKNOWN INDICATION
     Route: 058
     Dates: start: 20111020
  3. ANTIDEPRESSANTS [Concomitant]
     Indication: DEPRESSION
     Dosage: SINCE CHILDHOOD

REACTIONS (2)
  - SUICIDAL BEHAVIOUR [None]
  - ABASIA [None]
